FAERS Safety Report 21947327 (Version 2)
Quarter: 2023Q1

REPORT INFORMATION
  Report Type: Report from Study
  Country: US (occurrence: US)
  Receive Date: 20230202
  Receipt Date: 20230210
  Transmission Date: 20230418
  Serious: Yes (Other)
  Sender: FDA-Public Use
  Company Number: US-SEATTLE GENETICS-2023SGN01235

PATIENT
  Age: 50 Year
  Sex: Female

DRUGS (3)
  1. TUCATINIB [Suspect]
     Active Substance: TUCATINIB
     Indication: Product used for unknown indication
     Dosage: 150 MG
     Route: 065
  2. TUCATINIB [Suspect]
     Active Substance: TUCATINIB
     Dosage: 1 PILL (150 MG) IN THE MORNING (QAM)
     Route: 065
     Dates: start: 20230127
  3. TUCATINIB [Suspect]
     Active Substance: TUCATINIB
     Dosage: 2 PILLS (300 MG) AT NIGHT (QHS)
     Route: 065
     Dates: start: 20230127

REACTIONS (8)
  - Pneumonia [Unknown]
  - Eating disorder symptom [Unknown]
  - Toxicity to various agents [Unknown]
  - Dizziness [Unknown]
  - Intentional product use issue [Unknown]
  - Weight decreased [Unknown]
  - Stomatitis [Unknown]
  - Nausea [Unknown]

NARRATIVE: CASE EVENT DATE: 20230127
